FAERS Safety Report 4602206-5 (Version None)
Quarter: 2005Q1

REPORT INFORMATION
  Report Type: 
  Country: None (occurrence: None)
  Receive Date: 20050215
  Receipt Date: 20041209
  Transmission Date: 20050727
  Serious: Yes (Hospitalization)
  Sender: FDA-Public Use
  Company Number: MC200400885

PATIENT
  Sex: Male

DRUGS (2)
  1. ANGIOMAX [Suspect]
     Dates: start: 20041209
  2. PLAVIX [Concomitant]

REACTIONS (2)
  - CHEST PAIN [None]
  - CORONARY ARTERY THROMBOSIS [None]
